FAERS Safety Report 14344816 (Version 1)
Quarter: 2018Q1

REPORT INFORMATION
  Report Type: Report from Study
  Country: US (occurrence: US)
  Receive Date: 20180103
  Receipt Date: 20180103
  Transmission Date: 20180509
  Serious: Yes (Other)
  Sender: FDA-Public Use
  Company Number: US-ROCHE-2045416

PATIENT
  Sex: Male
  Weight: 129.39 kg

DRUGS (1)
  1. RITUXAN [Suspect]
     Active Substance: RITUXIMAB
     Indication: MULTIPLE SCLEROSIS
     Dosage: UNKNOWN
     Route: 042
     Dates: start: 201605

REACTIONS (7)
  - Flushing [Recovered/Resolved]
  - Uveitis [Recovered/Resolved]
  - Feeling hot [Recovered/Resolved]
  - Intentional product use issue [Unknown]
  - Ocular hyperaemia [Recovered/Resolved]
  - Off label use [Unknown]
  - Pruritus [Recovered/Resolved]
